FAERS Safety Report 14297830 (Version 2)
Quarter: 2018Q2

REPORT INFORMATION
  Report Type: Spontaneous
  Country: US (occurrence: US)
  Receive Date: 20171218
  Receipt Date: 20180529
  Transmission Date: 20180711
  Serious: Yes (Hospitalization)
  Sender: FDA-Public Use
  Company Number: US-DSJP-DSU-2017-138979

PATIENT

DRUGS (1)
  1. BENICAR HCT [Suspect]
     Active Substance: HYDROCHLOROTHIAZIDE\OLMESARTAN MEDOXOMIL
     Indication: PRODUCT USED FOR UNKNOWN INDICATION
     Dosage: 20/12.5 MG, QD
     Route: 048
     Dates: start: 20110202, end: 20161116

REACTIONS (8)
  - Duodenal ulcer haemorrhage [Recovering/Resolving]
  - Upper gastrointestinal haemorrhage [Recovering/Resolving]
  - Syncope [Unknown]
  - Acute kidney injury [Recovered/Resolved]
  - Anaemia [Recovering/Resolving]
  - Sprue-like enteropathy [Recovering/Resolving]
  - Constipation [Unknown]
  - Hypotension [Unknown]

NARRATIVE: CASE EVENT DATE: 20150813
